FAERS Safety Report 7093663-6 (Version None)
Quarter: 2010Q4

REPORT INFORMATION
  Report Type: 
  Country: None (occurrence: None)
  Receive Date: 20101102
  Receipt Date: 20101025
  Transmission Date: 20110411
  Serious: Yes (Other)
  Sender: FDA-Public Use
  Company Number: 2010SP057303

PATIENT
  Age: 67 Year
  Sex: Male

DRUGS (5)
  1. DULERA TABLET [Suspect]
     Indication: CHRONIC OBSTRUCTIVE PULMONARY DISEASE
     Dosage: 2 DF; PO
     Route: 048
  2. ADVAIR DISKUS 100/50 [Concomitant]
  3. SPIRIVA [Concomitant]
  4. JANUMET [Concomitant]
  5. ALBUTEROL [Concomitant]

REACTIONS (1)
  - DYSPNOEA [None]
